FAERS Safety Report 5026841-8 (Version None)
Quarter: 2006Q2

REPORT INFORMATION
  Report Type: 
  Country: None (occurrence: None)
  Receive Date: 20060609
  Receipt Date: 20060525
  Transmission Date: 20061013
  Serious: Yes (Other)
  Sender: FDA-Public Use
  Company Number: 2003JP006381

PATIENT
  Age: 15 Year
  Sex: Male
  Weight: 35 kg

DRUGS (11)
  1. PROGRAF [Suspect]
     Indication: HEART TRANSPLANT
     Dosage: 2MG, BID, ORAL
     Route: 048
     Dates: start: 20000625, end: 20021015
  2. CELLCEPT [Concomitant]
  3. PREDNISOLONE [Concomitant]
  4. ZOVIRAX [Concomitant]
  5. MEVALOTIN (PRAVASTATIN SODIUM) TABLET [Concomitant]
  6. HERBESSOR R (DILTIAZEM HYDROCHLORIDE) CAPSULE [Concomitant]
  7. ENALAPRIL MALEATE [Concomitant]
  8. GASTER TABLET [Concomitant]
  9. MAGNESIUM OXIDE (MAGNESIUM OXIDE) POWDER [Concomitant]
  10. BUFFERIN [Concomitant]
  11. HUMACART-N (INSULIN HUMAN) INJECTION [Concomitant]

REACTIONS (11)
  - ATRIOVENTRICULAR BLOCK [None]
  - CARDIAC FAILURE [None]
  - CONDITION AGGRAVATED [None]
  - CORONARY ARTERY DISEASE [None]
  - CYTOMEGALOVIRUS INFECTION [None]
  - DIABETES MELLITUS INADEQUATE CONTROL [None]
  - DILATATION VENTRICULAR [None]
  - EJECTION FRACTION DECREASED [None]
  - FATIGUE [None]
  - GLYCOSYLATED HAEMOGLOBIN INCREASED [None]
  - HEART TRANSPLANT REJECTION [None]
